FAERS Safety Report 8492974-7 (Version None)
Quarter: 2012Q3

REPORT INFORMATION
  Report Type: 
  Country: None (occurrence: None)
  Receive Date: 20120706
  Receipt Date: 20120629
  Transmission Date: 20120928
  Serious: Yes (Death, Hospitalization, Other)
  Sender: FDA-Public Use
  Company Number: JP-JNJFOC-20120701270

PATIENT
  Sex: Female
  Weight: 58 kg

DRUGS (19)
  1. MAGNESIUM OXIDE [Concomitant]
     Indication: PROPHYLAXIS
     Dosage: AS REQUIRED
     Route: 048
     Dates: start: 20090926, end: 20091001
  2. CEFOTIAM HYDROCHLORIDE [Concomitant]
     Dosage: AS REQUIRED
     Route: 042
     Dates: start: 20090816, end: 20090820
  3. LASIX [Concomitant]
     Dosage: AS REQUIRED
     Route: 048
     Dates: start: 20091018, end: 20091023
  4. DECADRON [Concomitant]
     Indication: PROPHYLAXIS
     Dosage: AS REQUIRED
     Route: 048
     Dates: start: 20091001, end: 20100125
  5. DOXORUBICIN HCL [Suspect]
     Indication: OVARIAN CANCER RECURRENT
     Dosage: CYCLE 2
     Route: 042
     Dates: start: 20090827, end: 20090827
  6. DOXORUBICIN HCL [Suspect]
     Dosage: CYCLE 1
     Route: 042
     Dates: start: 20090730, end: 20090730
  7. OXYCONTIN [Concomitant]
     Dosage: AS REQUIRED
     Route: 048
     Dates: start: 20100123, end: 20100201
  8. UNKNOWN MEDICATION [Concomitant]
     Dosage: AS REQUIRED
     Route: 042
     Dates: start: 20100202, end: 20100214
  9. LOXONIN [Concomitant]
     Route: 048
     Dates: start: 20090926, end: 20091001
  10. UNKNOWN MEDICATION [Concomitant]
     Dosage: AS REQUIRED
     Route: 042
     Dates: start: 20100202, end: 20100214
  11. LOXONIN [Concomitant]
     Indication: PROPHYLAXIS
     Dosage: AS REQUIRED
     Route: 048
     Dates: start: 20090816, end: 20090827
  12. PROCHLORPERAZINE [Concomitant]
     Indication: PROPHYLAXIS
     Dosage: AS REQUIRED
     Route: 048
     Dates: start: 20100201, end: 20100202
  13. DOXORUBICIN HCL [Suspect]
     Dosage: CYCLE 3
     Route: 042
     Dates: start: 20090918, end: 20090918
  14. CEFAZOLIN SODIUM [Concomitant]
     Indication: PROPHYLAXIS
     Dosage: AS REQUIRED
     Route: 048
     Dates: start: 20090804, end: 20090811
  15. IRON SUCROSE [Concomitant]
     Dosage: AS REQUIRED
     Route: 042
     Dates: start: 20090816, end: 20090817
  16. LECICARBON [Concomitant]
     Indication: PROPHYLAXIS
     Dosage: AS REQUIRED
     Route: 054
     Dates: start: 20090802, end: 20090802
  17. FLOMOX [Concomitant]
     Indication: PROPHYLAXIS
     Dosage: AS REQUIRED
     Route: 048
     Dates: start: 20091003, end: 20091009
  18. WARFARIN SODIUM [Concomitant]
     Dosage: AS REQUIRED
     Route: 048
     Dates: start: 20091113, end: 20100122
  19. UNKNOWN MEDICATION [Concomitant]
     Indication: PROPHYLAXIS
     Dosage: AS REQUIRED
     Route: 048
     Dates: start: 20100115, end: 20100202

REACTIONS (6)
  - HAEMOGLOBIN DECREASED [None]
  - OVARIAN CANCER RECURRENT [None]
  - OEDEMA PERIPHERAL [None]
  - DEEP VEIN THROMBOSIS [None]
  - CANCER PAIN [None]
  - NEUTROPENIA [None]
